FAERS Safety Report 4923233-4 (Version None)
Quarter: 2006Q1

REPORT INFORMATION
  Report Type: 
  Country: None (occurrence: None)
  Receive Date: 20060127
  Receipt Date: 20051202
  Transmission Date: 20060701
  Serious: Yes (Other)
  Sender: FDA-Public Use
  Company Number: 2005164526

PATIENT
  Sex: Male

DRUGS (3)
  1. LYRICA [Suspect]
     Indication: ILL-DEFINED DISORDER
     Dosage: 300 MG (100 MG 3 IN 1 D)
  2. LIPITOR [Suspect]
     Indication: ILL-DEFINED DISORDER
  3. CRESTOR [Suspect]
     Indication: ILL-DEFINED DISORDER

REACTIONS (2)
  - HYPOAESTHESIA [None]
  - PARAESTHESIA [None]
